FAERS Safety Report 8439504-3 (Version None)
Quarter: 2012Q2

REPORT INFORMATION
  Report Type: 
  Country: None (occurrence: None)
  Receive Date: 20120611
  Receipt Date: 20120611
  Transmission Date: 20120825
  Serious: Yes (Other)
  Sender: FDA-Public Use
  Company Number: None

PATIENT
  Age: 79 Year
  Sex: Female
  Weight: 80 kg

DRUGS (1)
  1. VENOFER [Suspect]
     Dosage: 200 MG ONETIME IV BOLUS
     Route: 040

REACTIONS (2)
  - INFUSION RELATED REACTION [None]
  - HEADACHE [None]
